FAERS Safety Report 21823295 (Version 1)
Quarter: 2023Q1

REPORT INFORMATION
  Report Type: Spontaneous
  Country: DK (occurrence: DK)
  Receive Date: 20230105
  Receipt Date: 20230105
  Transmission Date: 20230418
  Serious: Yes (Life-Threatening, Other)
  Sender: FDA-Public Use
  Company Number: None

PATIENT
  Age: 54 Year
  Sex: Male
  Weight: 120 kg

DRUGS (7)
  1. YERVOY [Suspect]
     Active Substance: IPILIMUMAB
     Indication: Malignant melanoma
     Dosage: STRENGTH: 5 MG/ML
     Route: 042
     Dates: start: 20221213, end: 20221218
  2. OPDIVO [Suspect]
     Active Substance: NIVOLUMAB
     Indication: Malignant melanoma
     Dosage: STRENGTH: UNKNOWN
     Route: 042
     Dates: start: 20221213, end: 20221218
  3. CHLORZOXAZONE [Concomitant]
     Active Substance: CHLORZOXAZONE
     Indication: Myalgia
     Dosage: STRENGTH: 250 MG
     Route: 048
     Dates: start: 20221204
  4. PANTOPRAZOLE [Concomitant]
     Active Substance: PANTOPRAZOLE
     Indication: Peptic ulcer
     Dates: start: 20221207
  5. GABAPENTIN [Concomitant]
     Active Substance: GABAPENTIN
     Indication: Pain
     Dosage: DOSAGE: AT NIGHT?STRENGTH: 300 MG
     Route: 048
     Dates: start: 20221214
  6. GABAPENTIN [Concomitant]
     Active Substance: GABAPENTIN
     Indication: Neuralgia
     Dosage: STRENGTH: 300 MG
     Route: 048
     Dates: start: 20221215
  7. MORPHINE [Concomitant]
     Active Substance: MORPHINE
     Indication: Pain
     Dosage: STRENGTH: 10 MG
     Route: 048
     Dates: start: 20221214

REACTIONS (6)
  - Rash papular [Not Recovered/Not Resolved]
  - Leukopenia [Recovering/Resolving]
  - Erythema [Not Recovered/Not Resolved]
  - Neutropenia [Recovered/Resolved]
  - Basophilopenia [Recovered/Resolved]
  - Off label use [Unknown]

NARRATIVE: CASE EVENT DATE: 20221218
